FAERS Safety Report 24344779 (Version 9)
Quarter: 2025Q2

REPORT INFORMATION
  Report Type: Spontaneous
  Country: US (occurrence: US)
  Receive Date: 20240920
  Receipt Date: 20250428
  Transmission Date: 20250716
  Serious: No
  Sender: PFIZER
  Company Number: US-PFIZER INC-PV202400121923

PATIENT
  Age: 69 Year
  Sex: Female
  Weight: 65.76 kg

DRUGS (9)
  1. TUKYSA [Suspect]
     Active Substance: TUCATINIB
     Indication: Neoplasm malignant
     Dosage: 150 MG, 2X/DAY
     Route: 048
     Dates: start: 202210, end: 202301
  2. TUKYSA [Suspect]
     Active Substance: TUCATINIB
     Dosage: 150 MG, 2X/DAY
     Route: 048
  3. TUKYSA [Suspect]
     Active Substance: TUCATINIB
     Dosage: TAKE ONE TABLET BY MOUTH TWICE DAILY WITH OR WITHOUT FOOD
     Route: 048
  4. TUKYSA [Suspect]
     Active Substance: TUCATINIB
     Dosage: TWO 150MG TABLETS, TWICE DAILY
     Dates: start: 20221011, end: 202501
  5. KISQALI [Suspect]
     Active Substance: RIBOCICLIB SUCCINATE
     Indication: Neoplasm malignant
     Dosage: 2 PILLS A DAY
  6. KISQALI [Suspect]
     Active Substance: RIBOCICLIB SUCCINATE
     Dosage: 1 PILL A DAY
  7. KISQALI [Suspect]
     Active Substance: RIBOCICLIB SUCCINATE
     Dosage: 400 MG, 2X/DAY
     Dates: start: 202406
  8. KISQALI [Suspect]
     Active Substance: RIBOCICLIB SUCCINATE
     Dosage: 200 MG, 2X/DAY
     Dates: start: 2024
  9. KISQALI [Suspect]
     Active Substance: RIBOCICLIB SUCCINATE

REACTIONS (5)
  - Full blood count decreased [Recovered/Resolved]
  - Fatigue [Recovered/Resolved]
  - White blood cell count abnormal [Unknown]
  - Off label use [Unknown]
  - Product use issue [Unknown]

NARRATIVE: CASE EVENT DATE: 20240801
